FAERS Safety Report 10310067 (Version 2)
Quarter: 2014Q3

REPORT INFORMATION
  Report Type: Spontaneous
  Country: DE (occurrence: DE)
  Receive Date: 20140717
  Receipt Date: 20140717
  Transmission Date: 20150326
  Serious: Yes (Other)
  Sender: FDA-Public Use
  Company Number: DE-SHIRE-DE201403365

PATIENT
  Sex: Male
  Weight: 42.3 kg

DRUGS (1)
  1. ELVANSE [Suspect]
     Active Substance: LISDEXAMFETAMINE DIMESYLATE
     Indication: ATTENTION DEFICIT/HYPERACTIVITY DISORDER
     Dosage: 70 MG, UNKNOWN
     Route: 048
     Dates: start: 20130614

REACTIONS (2)
  - Generalised tonic-clonic seizure [Unknown]
  - Electroencephalogram abnormal [Unknown]

NARRATIVE: CASE EVENT DATE: 2014
